FAERS Safety Report 9470300 (Version 1)
Quarter: 2013Q3

REPORT INFORMATION
  Report Type: Spontaneous
  Country: US (occurrence: US)
  Receive Date: 20130822
  Receipt Date: 20130822
  Transmission Date: 20140515
  Serious: No
  Sender: FDA-Public Use
  Company Number: US-SANOFI-AVENTIS-2012SA060016

PATIENT
  Age: 74 Year
  Sex: Male
  Weight: 77.27 kg

DRUGS (11)
  1. MULTAQ [Suspect]
     Indication: ATRIAL FIBRILLATION
     Route: 048
     Dates: start: 20120806
  2. METOPROLOL [Concomitant]
  3. COZAAR [Concomitant]
  4. DOXAZOSIN [Concomitant]
  5. WARFARIN [Concomitant]
  6. GLUCOSAMINE [Concomitant]
  7. NEXIUM [Concomitant]
  8. ZANTAC [Concomitant]
  9. MAGNESIUM [Concomitant]
  10. ALL OTHER THERAPEUTIC PRODUCTS [Concomitant]
  11. CALCIUM [Concomitant]

REACTIONS (1)
  - Weight decreased [Unknown]
